FAERS Safety Report 15694600 (Version 1)
Quarter: 2018Q4

REPORT INFORMATION
  Report Type: Spontaneous
  Country: US (occurrence: US)
  Receive Date: 20181206
  Receipt Date: 20181206
  Transmission Date: 20190205
  Serious: No
  Sender: FDA-Public Use
  Company Number: US-GRANULES INDIA LIMITED-2059751

PATIENT
  Age: 59 Year
  Sex: Male
  Weight: 113.64 kg

DRUGS (2)
  1. GLIPIZIDE. [Concomitant]
     Active Substance: GLIPIZIDE
     Route: 065
  2. METFORMIN HYDROCHLORIDE. [Suspect]
     Active Substance: METFORMIN HYDROCHLORIDE
     Indication: DIABETES MELLITUS
     Route: 065
     Dates: start: 20181124, end: 20181125

REACTIONS (3)
  - Abdominal distension [Recovering/Resolving]
  - Product odour abnormal [Unknown]
  - Nausea [Recovering/Resolving]
